FAERS Safety Report 23664074 (Version 1)
Quarter: 2024Q1

REPORT INFORMATION
  Report Type: Spontaneous
  Country: US (occurrence: US)
  Receive Date: 20240322
  Receipt Date: 20240322
  Transmission Date: 20240410
  Serious: No
  Sender: FDA-Public Use
  Company Number: US-NEUROCRINE BIOSCIENCES INC.-2024NBI02473

PATIENT
  Age: 65 Year
  Sex: Male

DRUGS (1)
  1. INGREZZA [Suspect]
     Active Substance: VALBENAZINE
     Indication: Product used for unknown indication
     Dosage: UNK
     Route: 065

REACTIONS (6)
  - Urinary incontinence [Unknown]
  - Anal incontinence [Unknown]
  - Tongue thrust [Unknown]
  - Sedation [Unknown]
  - Drooling [Unknown]
  - Dyskinesia [Unknown]
